FAERS Safety Report 23137832 (Version 1)
Quarter: 2023Q4

REPORT INFORMATION
  Report Type: Spontaneous
  Country: JP (occurrence: JP)
  Receive Date: 20231102
  Receipt Date: 20231102
  Transmission Date: 20240109
  Serious: Yes (Hospitalization, Other)
  Sender: FDA-Public Use
  Company Number: JP-GLAXOSMITHKLINE-JP2023JPN150505

PATIENT

DRUGS (1)
  1. VALTREX [Suspect]
     Active Substance: VALACYCLOVIR HYDROCHLORIDE
     Indication: Herpes zoster
     Dosage: 250 MG, QD

REACTIONS (4)
  - Toxic encephalopathy [Unknown]
  - Dyslalia [Recovering/Resolving]
  - Hemiataxia [Recovering/Resolving]
  - Neurological symptom [Unknown]
